FAERS Safety Report 5279874-0 (Version None)
Quarter: 2007Q1

REPORT INFORMATION
  Report Type: 
  Country: None (occurrence: None)
  Receive Date: 20061215
  Receipt Date: 20051201
  Transmission Date: 20070707
  Serious: Yes (Other)
  Sender: FDA-Public Use
  Company Number: HQWYE817402DEC05

PATIENT
  Age: 33 Year
  Sex: Female
  Weight: 65.83 kg

DRUGS (4)
  1. EFFEXOR XR [Suspect]
     Indication: DEPRESSION
     Dosage: SEE IMAGE
     Route: 048
     Dates: start: 20050101, end: 20050101
  2. EFFEXOR XR [Suspect]
     Indication: DEPRESSION
     Dosage: SEE IMAGE
     Route: 048
     Dates: start: 20050101
  3. CANNABIS (CANNABIS, ) [Suspect]
     Dosage: INHALATION
     Route: 055
  4. UNSPECIFIED CONTRACEPTIVE (UNSPECIFIED CONTRACEPTIVE) [Concomitant]

REACTIONS (6)
  - AGGRESSION [None]
  - CRYING [None]
  - FEELING ABNORMAL [None]
  - MOOD SWINGS [None]
  - NIGHT SWEATS [None]
  - SUICIDAL IDEATION [None]
